FAERS Safety Report 8885694 (Version 1)
Quarter: 2012Q4

REPORT INFORMATION
  Report Type: 
  Country: US (occurrence: US)
  Receive Date: 20121101
  Receipt Date: 20121101
  Transmission Date: 20130627
  Serious: Yes (Hospitalization)
  Sender: FDA-Public Use
  Company Number: US-PFIZER INC-2012267441

PATIENT
  Age: 91 Year
  Sex: Female
  Weight: 85.26 kg

DRUGS (12)
  1. AROMASIN [Suspect]
     Indication: BREAST CANCER
     Dosage: UNK, daily
     Route: 048
     Dates: start: 2012, end: 20121021
  2. METOPROLOL [Concomitant]
     Indication: HEART DISORDER
     Dosage: 100 mg, 2x/day
  3. AMLODIPINE [Concomitant]
     Indication: BLOOD PRESSURE ABNORMAL
     Dosage: UNK, daily
  4. LISINOPRIL [Concomitant]
     Indication: BLOOD PRESSURE ABNORMAL
     Dosage: UNK, daily
  5. FUROSEMIDE [Concomitant]
     Dosage: 20 mg, alternate day
  6. FUROSEMIDE [Concomitant]
     Dosage: 40 mg, alternate day
  7. DOCUSATE SODIUM [Concomitant]
     Indication: STOOLS HARD
     Dosage: UNK, daily
  8. LEVOTHYROXINE [Concomitant]
     Indication: THYROID DISORDER
     Dosage: UNK, daily
  9. GLIPIZIDE [Concomitant]
     Indication: BLOOD SUGAR ABNORMAL
     Dosage: UNK, daily
  10. KLOR-CON [Concomitant]
     Indication: POTASSIUM SUPPLEMENTATION
     Dosage: 10 mEq, 2x/day
  11. ALLOPURINOL [Concomitant]
     Indication: GOUT
     Dosage: UNK
  12. WARFARIN [Concomitant]
     Indication: ANTICOAGULANT THERAPY
     Dosage: 2 mg, daily

REACTIONS (5)
  - Urinary tract infection [Unknown]
  - Pyrexia [Recovered/Resolved]
  - Infection [Unknown]
  - Nervousness [Unknown]
  - Skin lesion [Unknown]
